FAERS Safety Report 7392169-4 (Version None)
Quarter: 2011Q2

REPORT INFORMATION
  Report Type: 
  Country: None (occurrence: None)
  Receive Date: 20110404
  Receipt Date: 20110322
  Transmission Date: 20111010
  Serious: Yes (Life-Threatening, Hospitalization)
  Sender: FDA-Public Use
  Company Number: B0506909A

PATIENT
  Sex: Female
  Weight: 49 kg

DRUGS (103)
  1. VANCOMYCIN [Suspect]
     Route: 042
     Dates: start: 20030617, end: 20030709
  2. FUNGUARD [Suspect]
     Dosage: 100MG PER DAY
     Route: 042
     Dates: start: 20031006
  3. ZOVIRAX [Suspect]
     Dosage: 400MG PER DAY
     Route: 048
     Dates: start: 20030918, end: 20030918
  4. VENOGLOBULIN [Suspect]
     Dosage: 2.5G PER DAY
     Route: 042
     Dates: start: 20030930, end: 20031002
  5. VENOGLOBULIN [Suspect]
     Dosage: 1G PER DAY
     Route: 042
     Dates: start: 20031014, end: 20031014
  6. METHYLPREDNISOLONE SODIUM SUCCINATE [Concomitant]
     Indication: IMMUNOSUPPRESSANT DRUG THERAPY
     Route: 042
     Dates: start: 20030613, end: 20030804
  7. HICALIQ [Concomitant]
     Route: 042
     Dates: start: 20030704, end: 20030804
  8. DEPAS [Concomitant]
     Route: 048
     Dates: start: 20030925, end: 20040109
  9. ASPARA-CA [Concomitant]
     Route: 048
     Dates: start: 20040213
  10. GAMIMUNE N 5% [Concomitant]
     Route: 042
     Dates: start: 20030703, end: 20030703
  11. ALPROSTADIL [Concomitant]
     Route: 042
     Dates: start: 20030613, end: 20030626
  12. BISOLVON [Concomitant]
     Route: 055
     Dates: start: 20030613, end: 20030929
  13. NEO-MINOPHAGEN-C [Concomitant]
     Route: 042
     Dates: start: 20030622, end: 20030807
  14. MAGNESIUM SULFATE [Concomitant]
     Route: 042
     Dates: start: 20031008, end: 20031031
  15. PHENOBARBITAL TAB [Concomitant]
     Route: 048
     Dates: start: 20030711, end: 20030714
  16. DIPRIVAN [Suspect]
     Route: 042
     Dates: start: 20030615, end: 20030630
  17. GANCICLOVIR SODIUM [Suspect]
     Dosage: 1000MG PER DAY
     Route: 048
     Dates: start: 20030806
  18. BAKTAR [Suspect]
     Dosage: 1IUAX PER DAY
     Route: 048
     Dates: start: 20030630
  19. VENOGLOBULIN [Suspect]
     Dosage: 5G PER DAY
     Route: 042
     Dates: start: 20030614, end: 20030617
  20. VENOGLOBULIN [Suspect]
     Dosage: 17.5G PER DAY
     Route: 042
     Dates: start: 20031007, end: 20031007
  21. PHENOBARBITAL TAB [Concomitant]
     Route: 048
     Dates: start: 20030711, end: 20030714
  22. RISPERDAL [Concomitant]
     Route: 048
     Dates: start: 20030714, end: 20030714
  23. SOLITA-T [Concomitant]
     Route: 042
     Dates: start: 20030805, end: 20030807
  24. ALBUMIN (HUMAN) [Concomitant]
     Route: 042
     Dates: start: 20030629, end: 20030630
  25. LANDSEN [Concomitant]
     Route: 048
     Dates: start: 20030630, end: 20030814
  26. SUPRECUR [Concomitant]
     Indication: LYMPHOMA
     Route: 045
     Dates: start: 20030701, end: 20030712
  27. MEROPEN [Suspect]
     Dosage: 1.5G PER DAY
     Route: 042
     Dates: start: 20030622
  28. VENOGLOBULIN [Suspect]
     Dosage: 17.5G PER DAY
     Route: 042
     Dates: start: 20030924, end: 20030924
  29. EURODIN [Concomitant]
     Route: 048
     Dates: start: 20030822, end: 20040116
  30. PRIMPERAN TAB [Concomitant]
     Route: 042
     Dates: start: 20031004, end: 20031021
  31. BIOFERMIN R [Concomitant]
     Route: 048
     Dates: start: 20031006
  32. FUROSEMIDE [Concomitant]
     Route: 048
     Dates: start: 20031009, end: 20031103
  33. ITRIZOLE [Concomitant]
     Route: 048
     Dates: start: 20031104
  34. KLARICID [Concomitant]
     Route: 048
     Dates: start: 20040430
  35. TAGAMET [Concomitant]
     Route: 042
     Dates: start: 20030613, end: 20030807
  36. IMURAN [Suspect]
     Indication: IMMUNOSUPPRESSANT DRUG THERAPY
     Dosage: 100MG PER DAY
     Route: 048
     Dates: start: 20030613, end: 20031005
  37. TARGOCID [Suspect]
     Route: 042
     Dates: start: 20030613
  38. PASIL [Suspect]
     Dosage: 1G PER DAY
     Route: 042
     Dates: start: 20030613
  39. TAZOCIN [Suspect]
     Dosage: 10G PER DAY
     Route: 042
     Dates: start: 20030623
  40. VENOGLOBULIN [Suspect]
     Dosage: 10G PER DAY
     Route: 042
     Dates: start: 20031021, end: 20031021
  41. PREDNISOLONE [Concomitant]
     Indication: IMMUNOSUPPRESSANT DRUG THERAPY
     Route: 048
     Dates: start: 20030805
  42. LEPETAN [Concomitant]
     Route: 054
     Dates: start: 20030710, end: 20030713
  43. AMOBAN [Concomitant]
     Route: 048
     Dates: start: 20030926, end: 20030926
  44. CALCICOL [Concomitant]
     Route: 042
     Dates: start: 20031003, end: 20031003
  45. MEROPEN [Concomitant]
     Route: 042
     Dates: start: 20030622, end: 20030622
  46. INOVAN [Concomitant]
     Route: 042
     Dates: start: 20030626, end: 20030805
  47. ALBUMIN (HUMAN) [Concomitant]
     Route: 042
     Dates: start: 20030623, end: 20030624
  48. PHYSIO 35 [Concomitant]
     Route: 042
     Dates: start: 20030615, end: 20030616
  49. AMINO ACID INJ [Concomitant]
     Route: 042
     Dates: start: 20030617, end: 20030619
  50. HEMATINIC [Concomitant]
     Route: 042
     Dates: start: 20030617, end: 20030807
  51. VECURONIUM BROMIDE [Concomitant]
     Route: 042
     Dates: start: 20030613, end: 20030617
  52. FENTANYL CITRATE [Suspect]
     Route: 042
     Dates: start: 20030613, end: 20030615
  53. FOSCAVIR [Suspect]
     Dosage: 5400MG PER DAY
     Route: 042
     Dates: start: 20031002, end: 20031117
  54. POTASSIUM CHLORIDE [Concomitant]
     Route: 042
     Dates: start: 20030706, end: 20030804
  55. MAINTATE [Concomitant]
     Route: 048
     Dates: start: 20030725, end: 20031028
  56. EURODIN [Concomitant]
     Route: 048
     Dates: start: 20040316
  57. KLARICID [Concomitant]
     Route: 048
     Dates: start: 20040301
  58. TARGOCID [Concomitant]
     Route: 042
     Dates: start: 20030613, end: 20030616
  59. NITROGLYCERIN [Concomitant]
     Route: 042
     Dates: start: 20030613, end: 20030613
  60. ULCERLMIN [Concomitant]
     Route: 048
     Dates: start: 20030625, end: 20030902
  61. ROPIVACAINE [Suspect]
     Dosage: 240MG PER DAY
     Route: 042
     Dates: start: 20030616, end: 20030625
  62. GASTER D [Suspect]
     Route: 048
     Dates: start: 20030902
  63. CARBENIN [Suspect]
     Route: 042
     Dates: start: 20030613, end: 20030621
  64. VENOGLOBULIN [Suspect]
     Dosage: 5G PER DAY
     Route: 042
     Dates: start: 20030622, end: 20030624
  65. PROGRAF [Suspect]
     Dosage: 1.3MG PER DAY
     Route: 042
     Dates: start: 20030620, end: 20030623
  66. HIRNAMIN [Concomitant]
     Route: 048
     Dates: start: 20030715, end: 20030814
  67. MAINTATE [Concomitant]
     Route: 048
     Dates: start: 20031112
  68. HALCION [Concomitant]
     Route: 048
     Dates: start: 20030902, end: 20030925
  69. FUNGUARD [Concomitant]
     Route: 042
     Dates: start: 20031006, end: 20031103
  70. ALDACTONE [Concomitant]
     Route: 048
     Dates: start: 20031009, end: 20031103
  71. JUVELA N [Concomitant]
     Route: 048
     Dates: start: 20040405, end: 20040420
  72. GAMIMUNE N 5% [Concomitant]
     Route: 042
     Dates: start: 20030626, end: 20030626
  73. CORETEC [Concomitant]
     Route: 042
     Dates: start: 20030613, end: 20030620
  74. DORMICUM [Concomitant]
     Route: 042
     Dates: start: 20030613, end: 20030615
  75. ALOTEC [Concomitant]
     Route: 055
     Dates: start: 20030613, end: 20030929
  76. ALBUMIN (HUMAN) [Concomitant]
     Route: 042
     Dates: start: 20030614, end: 20030617
  77. MINERALIN [Concomitant]
     Route: 042
     Dates: start: 20030617, end: 20030804
  78. FOY [Concomitant]
     Route: 042
     Dates: start: 20030619, end: 20030707
  79. HABEKACIN [Concomitant]
     Route: 042
     Dates: start: 20030619, end: 20030709
  80. AMINO ACID INJ [Concomitant]
     Route: 042
     Dates: start: 20030620, end: 20030627
  81. PROGRAF [Suspect]
     Indication: IMMUNOSUPPRESSANT DRUG THERAPY
     Dosage: 1MG VARIABLE DOSE
     Route: 042
     Dates: start: 20030613
  82. FUNGIZONE [Suspect]
     Route: 055
     Dates: start: 20030613, end: 20031116
  83. ITRIZOLE [Suspect]
     Dosage: 100MG PER DAY
     Route: 048
     Dates: start: 20031104, end: 20061026
  84. DIFLUCAN [Suspect]
     Dosage: 100MG PER DAY
     Route: 042
     Dates: start: 20030613, end: 20030716
  85. LENDORMIN [Concomitant]
     Route: 048
     Dates: start: 20030729, end: 20030820
  86. MAGNESIUM OXIDE [Concomitant]
     Route: 048
     Dates: start: 20030815, end: 20030910
  87. GAMIMUNE N 5% [Concomitant]
     Route: 042
     Dates: start: 20030613, end: 20030613
  88. ELASPOL [Concomitant]
     Route: 042
     Dates: start: 20030613, end: 20030626
  89. INOVAN [Concomitant]
     Route: 042
     Dates: start: 20030613, end: 20030621
  90. ALBUMIN (HUMAN) [Concomitant]
     Route: 042
     Dates: start: 20030625, end: 20030625
  91. HICALIQ [Concomitant]
     Route: 042
     Dates: start: 20030628, end: 20030704
  92. IMURAN [Suspect]
     Dosage: 50MG PER DAY
     Route: 048
     Dates: start: 20031219
  93. MYSLEE [Suspect]
     Dosage: 10MG PER DAY
     Route: 048
     Dates: start: 20030707, end: 20070610
  94. BENZALIN [Concomitant]
     Route: 048
     Dates: start: 20030715, end: 20030728
  95. EURODIN [Concomitant]
     Route: 048
     Dates: start: 20030729, end: 20030812
  96. CALCICOL [Concomitant]
     Route: 042
     Dates: start: 20031006, end: 20031028
  97. MEROPEN [Concomitant]
     Route: 042
     Dates: start: 20031004, end: 20031014
  98. KLARICID [Concomitant]
     Route: 048
     Dates: start: 20031110, end: 20040217
  99. PASIL [Concomitant]
     Route: 042
     Dates: start: 20030613, end: 20030616
  100. DIFLUCAN [Concomitant]
     Route: 042
     Dates: start: 20030613, end: 20030716
  101. VECURONIUM BROMIDE [Concomitant]
     Route: 042
     Dates: start: 20030613, end: 20030617
  102. SOLITA-T [Concomitant]
     Route: 042
     Dates: start: 20030613, end: 20030614
  103. KIDMIN [Concomitant]
     Route: 042
     Dates: start: 20030704, end: 20030804

REACTIONS (11)
  - ALTERED STATE OF CONSCIOUSNESS [None]
  - HYPERGLYCAEMIA [None]
  - PNEUMOTHORAX [None]
  - RETROPERITONEAL LYMPHADENOPATHY [None]
  - CYTOMEGALOVIRUS VIRAEMIA [None]
  - WHITE BLOOD CELL COUNT DECREASED [None]
  - RENAL IMPAIRMENT [None]
  - PLEURAL EFFUSION [None]
  - CONVULSION [None]
  - CYST [None]
  - PNEUMONIA STAPHYLOCOCCAL [None]
